FAERS Safety Report 17237664 (Version 5)
Quarter: 2020Q3

REPORT INFORMATION
  Report Type: Spontaneous
  Country: US (occurrence: US)
  Receive Date: 20200106
  Receipt Date: 20200713
  Transmission Date: 20201102
  Serious: Yes (Hospitalization)
  Sender: FDA-Public Use
  Company Number: US-ACTELION-A-NJ2019-199362

PATIENT
  Age: 68 Year
  Sex: Male

DRUGS (12)
  1. AMLODIPINE BESILATE W/BENAZEPRIL [Concomitant]
  2. DULOXETINE. [Concomitant]
     Active Substance: DULOXETINE
  3. OMEPRAZOLE. [Concomitant]
     Active Substance: OMEPRAZOLE
  4. SIMVASTATIN. [Concomitant]
     Active Substance: SIMVASTATIN
  5. OPSUMIT [Suspect]
     Active Substance: MACITENTAN
     Indication: PULMONARY ARTERIAL HYPERTENSION
     Dosage: 10 MG
     Route: 048
     Dates: start: 20191105, end: 20191221
  6. ADVAIR HFA [Concomitant]
     Active Substance: FLUTICASONE PROPIONATE\SALMETEROL XINAFOATE
  7. LOSARTAN POTASSIUM. [Concomitant]
     Active Substance: LOSARTAN POTASSIUM
  8. MAGNESIUM [Concomitant]
     Active Substance: MAGNESIUM
  9. POTASSIUM [Concomitant]
     Active Substance: POTASSIUM
  10. MONTELUKAST [Concomitant]
     Active Substance: MONTELUKAST SODIUM
  11. UPTRAVI [Suspect]
     Active Substance: SELEXIPAG
     Indication: PULMONARY ARTERIAL HYPERTENSION
     Dosage: 400 MCG, BID
     Route: 048
     Dates: start: 20200325, end: 202006
  12. CARVEDILOL. [Concomitant]
     Active Substance: CARVEDILOL

REACTIONS (10)
  - Emphysema [Unknown]
  - Dyspnoea exertional [Unknown]
  - Asthenia [Unknown]
  - Dyspnoea [Recovered/Resolved]
  - Hypoxia [Unknown]
  - Dizziness [Recovered/Resolved]
  - Oxygen saturation decreased [Unknown]
  - Pulmonary hypertension [Unknown]
  - Hypotension [Unknown]
  - Fatigue [Unknown]

NARRATIVE: CASE EVENT DATE: 20191221
